FAERS Safety Report 9155842 (Version 3)
Quarter: 2014Q2

REPORT INFORMATION
  Report Type: Report from Study
  Country: US (occurrence: US)
  Receive Date: 20130311
  Receipt Date: 20140425
  Transmission Date: 20141212
  Serious: Yes (Hospitalization)
  Sender: FDA-Public Use
  Company Number: US-ROCHE-1200462

PATIENT
  Age: 61 Year
  Sex: Male
  Weight: 84.7 kg

DRUGS (13)
  1. RIBAVIRIN [Suspect]
     Indication: HEPATITIS C
     Route: 048
     Dates: start: 20130128
  2. PEG-INTERFERON ALFA 2A [Suspect]
     Indication: HEPATITIS C
     Route: 058
     Dates: start: 20130128
  3. TELAPREVIR [Suspect]
     Indication: HEPATITIS C
     Route: 048
     Dates: start: 20130128
  4. PREVACID [Concomitant]
     Route: 065
     Dates: start: 2006
  5. MYFORTIC [Concomitant]
     Route: 065
     Dates: start: 2008
  6. CALCIUM D 500 [Concomitant]
     Route: 065
     Dates: start: 2008
  7. OMEGA 3 [Concomitant]
     Route: 065
     Dates: start: 2008
  8. PHENERGAN [Concomitant]
  9. ARANESP [Concomitant]
     Route: 065
  10. HEPARIN [Concomitant]
     Route: 065
  11. PANTOPRAZOLE [Concomitant]
     Route: 048
  12. AMBIEN [Concomitant]
     Route: 048
  13. NORCO [Concomitant]
     Route: 065

REACTIONS (1)
  - Syncope [Recovered/Resolved]
